APPROVED DRUG PRODUCT: PIRMELLA 1/35
Active Ingredient: ETHINYL ESTRADIOL; NORETHINDRONE
Strength: 0.035MG;1MG
Dosage Form/Route: TABLET;ORAL-28
Application: A201512 | Product #001
Applicant: LUPIN LTD
Approved: Apr 24, 2013 | RLD: No | RS: No | Type: DISCN